FAERS Safety Report 19034956 (Version 2)
Quarter: 2021Q2

REPORT INFORMATION
  Report Type: Report from Study
  Country: US (occurrence: US)
  Receive Date: 20210320
  Receipt Date: 20210518
  Transmission Date: 20210717
  Serious: Yes (Death)
  Sender: FDA-Public Use
  Company Number: NVSC2021US064809

PATIENT
  Age: 79 Year
  Sex: Male

DRUGS (1)
  1. XIIDRA [Suspect]
     Active Substance: LIFITEGRAST
     Indication: DRY EYE
     Dosage: UNK UNK, BID
     Route: 065
     Dates: start: 20171027

REACTIONS (1)
  - Death [Fatal]

NARRATIVE: CASE EVENT DATE: 20210317
